FAERS Safety Report 8530723-4 (Version None)
Quarter: 2012Q3

REPORT INFORMATION
  Report Type: 
  Country: None (occurrence: None)
  Receive Date: 20120723
  Receipt Date: 20120711
  Transmission Date: 20120928
  Serious: Yes (Other)
  Sender: FDA-Public Use
  Company Number: JP-ROCHE-1062406

PATIENT
  Sex: Female
  Weight: 52 kg

DRUGS (2)
  1. ACETAMINOPHEN [Concomitant]
     Indication: PYREXIA
     Dosage: TAKEN AS NEEDED. PYREXIA
     Route: 048
     Dates: start: 20120412
  2. TAMIFLU [Suspect]
     Indication: INFLUENZA
     Route: 048
     Dates: start: 20120412, end: 20120413

REACTIONS (2)
  - MALAISE [None]
  - MUSCLE SPASMS [None]
